FAERS Safety Report 5167143-9 (Version None)
Quarter: 2006Q4

REPORT INFORMATION
  Report Type: 
  Country: None (occurrence: None)
  Receive Date: 20061207
  Receipt Date: 20061117
  Transmission Date: 20070319
  Serious: Yes (Hospitalization)
  Sender: FDA-Public Use
  Company Number: AU-JNJFOC-20061201084

PATIENT
  Sex: Male

DRUGS (5)
  1. REMINYL [Suspect]
  2. REMINYL [Suspect]
  3. REMINYL [Suspect]
     Indication: DRUG USE FOR UNKNOWN INDICATION
  4. SEROQUEL [Suspect]
     Indication: DRUG USE FOR UNKNOWN INDICATION
  5. NORPSPAN [Concomitant]
     Route: 062

REACTIONS (5)
  - ABASIA [None]
  - ABNORMAL BEHAVIOUR [None]
  - DEMENTIA [None]
  - DYSKINESIA [None]
  - PARKINSONISM [None]
